FAERS Safety Report 21457342 (Version 1)
Quarter: 2022Q4

REPORT INFORMATION
  Report Type: Spontaneous
  Country: US (occurrence: None)
  Receive Date: 20221013
  Receipt Date: 20221013
  Transmission Date: 20230113
  Serious: No
  Sender: FDA-Public Use
  Company Number: None

PATIENT
  Sex: Female

DRUGS (19)
  1. CYCLOPHOSPHAMIDE [Suspect]
     Active Substance: CYCLOPHOSPHAMIDE
     Indication: Plasma cell myeloma
     Dosage: FREQUENCY : WEEKLY;?
     Route: 048
  2. ACYCLOVIR [Concomitant]
     Active Substance: ACYCLOVIR
  3. ALBUTEROL [Concomitant]
     Active Substance: ALBUTEROL
  4. ASPIRIN [Concomitant]
     Active Substance: ASPIRIN
  5. ARNUITY ELLIPTA [Concomitant]
     Active Substance: FLUTICASONE FUROATE
  6. ATORVASTATIN [Concomitant]
     Active Substance: ATORVASTATIN
  7. AZITHROMYCIN [Concomitant]
     Active Substance: AZITHROMYCIN
  8. VITAMIN B COMPLEX [Concomitant]
     Active Substance: CYANOCOBALAMIN\DEXPANTHENOL\NIACINAMIDE\PYRIDOXINE HYDROCHLORIDE\RIBOFLAVIN 5^-PHOSPHATE SODIUM\THIA
  9. CALCIUM [Concomitant]
     Active Substance: CALCIUM
  10. CLARITIN [Concomitant]
     Active Substance: LORATADINE
  11. VITAMIN D [Concomitant]
     Active Substance: VITAMIN D NOS
  12. GABAPENTIN [Concomitant]
     Active Substance: GABAPENTIN
  13. FLONASE [Concomitant]
     Active Substance: FLUTICASONE PROPIONATE
  14. POTASSIUM [Concomitant]
     Active Substance: POTASSIUM
  15. MAGNESIUM [Concomitant]
     Active Substance: MAGNESIUM
  16. LEVAQUIN [Concomitant]
     Active Substance: LEVOFLOXACIN
  17. NITROSTAT [Concomitant]
     Active Substance: NITROGLYCERIN
  18. ROPINIROLE [Concomitant]
     Active Substance: ROPINIROLE
  19. VITAMIN B6 [Concomitant]
     Active Substance: PYRIDOXINE HYDROCHLORIDE

REACTIONS (2)
  - Therapy cessation [None]
  - Disease progression [None]
